FAERS Safety Report 5228386-9 (Version None)
Quarter: 2007Q1

REPORT INFORMATION
  Report Type: 
  Country: None (occurrence: None)
  Receive Date: 20070205
  Receipt Date: 20070129
  Transmission Date: 20070707
  Serious: Yes (Death, Other)
  Sender: FDA-Public Use
  Company Number: PHBS2007NZ01959

PATIENT
  Age: 73 Year
  Sex: Male

DRUGS (6)
  1. ZOLEDRONIC ACID [Suspect]
     Indication: MULTIPLE MYELOMA
     Dosage: 4 MG, MONTHLY
     Route: 042
     Dates: start: 20011001
  2. PAMIDRONATE DISODIUM [Suspect]
     Indication: MULTIPLE MYELOMA
     Dosage: 90 MG, MONTHLY
     Dates: end: 20011001
  3. MELPHALAN [Concomitant]
     Route: 065
  4. PREDNISONE [Concomitant]
     Dosage: ALTERNATE DAY
     Route: 065
  5. CYCLOPHOSPHAMIDE [Concomitant]
     Dosage: WEEKLY
     Route: 065
  6. THALIDOMIDE [Concomitant]
     Route: 065

REACTIONS (4)
  - BONE DISORDER [None]
  - DENTAL TREATMENT [None]
  - MALIGNANT NEOPLASM PROGRESSION [None]
  - OSTEONECROSIS [None]
